FAERS Safety Report 19574483 (Version 2)
Quarter: 2021Q3

REPORT INFORMATION
  Report Type: Spontaneous
  Country: US (occurrence: US)
  Receive Date: 20210719
  Receipt Date: 20210809
  Transmission Date: 20211014
  Serious: No
  Sender: FDA-Public Use
  Company Number: US-JNJFOC-20210734009

PATIENT
  Age: 77 Year
  Sex: Male

DRUGS (1)
  1. IMODIUM [Suspect]
     Active Substance: LOPERAMIDE HYDROCHLORIDE
     Indication: COLON CANCER
     Route: 048

REACTIONS (3)
  - Product packaging issue [Unknown]
  - Off label use [Unknown]
  - Product use in unapproved indication [Unknown]
